FAERS Safety Report 7636058-6 (Version None)
Quarter: 2011Q3

REPORT INFORMATION
  Report Type: 
  Country: None (occurrence: None)
  Receive Date: 20110726
  Receipt Date: 20110720
  Transmission Date: 20111222
  Serious: Yes (Death, Hospitalization, Other)
  Sender: FDA-Public Use
  Company Number: FR-PFIZER INC-2011164197

PATIENT
  Age: 75 Year
  Sex: Male

DRUGS (16)
  1. BLEOMYCIN SULFATE [Suspect]
     Indication: HODGKIN'S DISEASE
     Dosage: 14 MG, CYCLIC
     Route: 042
     Dates: start: 20110331, end: 20110513
  2. XALATAN [Concomitant]
     Dosage: UNK
  3. LERCANIDIPINE [Concomitant]
     Dosage: UNK
  4. INDAPAMIDE [Concomitant]
     Dosage: UNK
  5. COLLYRIUM [Suspect]
     Dosage: UNK
  6. ALLOPURINOL [Concomitant]
     Dosage: UNK
  7. PERMIXON [Concomitant]
     Dosage: UNK
  8. VINBLASTINE SULFATE [Suspect]
     Indication: HODGKIN'S DISEASE
     Dosage: 8 MG, CYCLIC
     Route: 042
     Dates: start: 20110331, end: 20110513
  9. METOCLOPRAMIDE [Concomitant]
     Dosage: UNK
  10. ATARAX [Concomitant]
     Dosage: UNK
  11. DOXORUBICIN HCL [Suspect]
     Indication: HODGKIN'S DISEASE
     Dosage: 30 MG, CYCLIC
     Route: 042
     Dates: start: 20110331, end: 20110513
  12. PLAVIX [Suspect]
     Dosage: 75 MG, 1X/DAY
     Route: 048
     Dates: end: 20110601
  13. ONDANSETRON [Concomitant]
     Dosage: UNK
  14. ATORVASTATIN CALCIUM [Suspect]
     Dosage: 10 MG, 2X/DAY
     Route: 048
     Dates: end: 20110608
  15. DACARBAZINE [Suspect]
     Indication: HODGKIN'S DISEASE
     Dosage: 500 MG, CYCLIC
     Route: 042
     Dates: start: 20110331, end: 20110513
  16. ISKEDYL [Concomitant]
     Dosage: UNK

REACTIONS (9)
  - COUGH [None]
  - INTERSTITIAL LUNG DISEASE [None]
  - WEIGHT DECREASED [None]
  - DYSPHAGIA [None]
  - DYSPNOEA [None]
  - CARDIO-RESPIRATORY ARREST [None]
  - ASTHENIA [None]
  - LIVER FUNCTION TEST ABNORMAL [None]
  - HAEMATEMESIS [None]
